FAERS Safety Report 24927876 (Version 1)
Quarter: 2025Q1

REPORT INFORMATION
  Report Type: Spontaneous
  Country: AU (occurrence: AU)
  Receive Date: 20250205
  Receipt Date: 20250205
  Transmission Date: 20250409
  Serious: Yes (Hospitalization, Other)
  Sender: MYLAN
  Company Number: AU-MYLANLABS-2025M1008870

PATIENT
  Age: 5 Decade
  Sex: Female

DRUGS (5)
  1. FENTANYL [Suspect]
     Active Substance: FENTANYL
     Indication: Cancer pain
     Dosage: 200 MICROGRAM, QD (IMMEDIATE RELEASE, 8?12 DOSES)
     Route: 048
  2. FENTANYL [Suspect]
     Active Substance: FENTANYL
     Route: 048
  3. OXYCODONE [Suspect]
     Active Substance: OXYCODONE
     Indication: Cancer pain
     Dosage: 40 MILLIGRAM, BID (MODIFIED RELEASE)
     Route: 065
  4. MORPHINE [Suspect]
     Active Substance: MORPHINE
     Indication: Cancer pain
     Route: 065
  5. TRAMADOL [Concomitant]
     Active Substance: TRAMADOL
     Indication: Cancer pain
     Route: 065

REACTIONS (5)
  - Rebound effect [Recovering/Resolving]
  - Cancer pain [Recovering/Resolving]
  - Pain [Recovering/Resolving]
  - Nervous system disorder [Unknown]
  - Cognitive disorder [Unknown]
